FAERS Safety Report 10588432 (Version 2)
Quarter: 2014Q4

REPORT INFORMATION
  Report Type: Spontaneous
  Country: US (occurrence: US)
  Receive Date: 20141117
  Receipt Date: 20141121
  Transmission Date: 20150529
  Serious: Yes (Other)
  Sender: FDA-Public Use
  Company Number: US-PFIZER INC-2014314231

PATIENT
  Age: 61 Year
  Sex: Male
  Weight: 104.31 kg

DRUGS (1)
  1. VIAGRA [Suspect]
     Active Substance: SILDENAFIL CITRATE
     Indication: ERECTILE DYSFUNCTION
     Dosage: UNK
     Dates: start: 20141107

REACTIONS (7)
  - Nausea [Unknown]
  - Dizziness [Unknown]
  - Nasopharyngitis [Unknown]
  - Loss of consciousness [Unknown]
  - Heart rate increased [Unknown]
  - Hyperhidrosis [Unknown]
  - Heart rate irregular [Unknown]

NARRATIVE: CASE EVENT DATE: 20141111
